FAERS Safety Report 10402873 (Version 1)
Quarter: 2014Q3

REPORT INFORMATION
  Report Type: Spontaneous
  Country: US (occurrence: US)
  Receive Date: 20140822
  Receipt Date: 20140822
  Transmission Date: 20150326
  Serious: Yes (Death, Hospitalization)
  Sender: FDA-Public Use
  Company Number: US-ACTAVIS-2014-18246

PATIENT
  Age: 6 Month
  Sex: Male

DRUGS (1)
  1. PROMETHAZINE [Suspect]
     Active Substance: PROMETHAZINE\PROMETHAZINE HYDROCHLORIDE
     Indication: GASTROENTERITIS
     Dosage: 6.25 MG, SINGLE
     Route: 054

REACTIONS (2)
  - Off label use [Fatal]
  - Apnoea [Fatal]
